FAERS Safety Report 5503215-4 (Version None)
Quarter: 2007Q4

REPORT INFORMATION
  Report Type: 
  Country: None (occurrence: None)
  Receive Date: 20071031
  Receipt Date: 20071018
  Transmission Date: 20080405
  Serious: Yes (Other)
  Sender: FDA-Public Use
  Company Number: CL-PFIZER INC-2007086677

PATIENT
  Age: 31 Year
  Sex: Male
  Weight: 88 kg

DRUGS (3)
  1. CELECOXIB [Suspect]
     Indication: PAIN
     Route: 048
     Dates: start: 20070907, end: 20070907
  2. CELECOXIB [Suspect]
     Indication: HEADACHE
  3. CETIRIZINE HCL [Concomitant]
     Indication: RHINITIS ALLERGIC
     Route: 048

REACTIONS (6)
  - COUGH [None]
  - GENITAL ERYTHEMA [None]
  - HYPERSENSITIVITY [None]
  - PRURITUS [None]
  - STOMATITIS [None]
  - TONGUE DISORDER [None]
